FAERS Safety Report 5739179-8 (Version None)
Quarter: 2008Q2

REPORT INFORMATION
  Report Type: 
  Country: None (occurrence: None)
  Receive Date: 20080515
  Receipt Date: 20080507
  Transmission Date: 20081010
  Serious: Yes (Other)
  Sender: FDA-Public Use
  Company Number: PHBS1998AU31502

PATIENT
  Age: 27 Year
  Sex: Female
  Weight: 63 kg

DRUGS (1)
  1. FAMVIR [Suspect]
     Indication: HERPES ZOSTER
     Dosage: 250 MG/DAY
     Route: 048
     Dates: start: 19980808, end: 19980811

REACTIONS (6)
  - ATAXIA [None]
  - DYSARTHRIA [None]
  - FALL [None]
  - HEADACHE [None]
  - NAUSEA [None]
  - VOMITING [None]
